FAERS Safety Report 20083260 (Version 2)
Quarter: 2021Q4

REPORT INFORMATION
  Report Type: Spontaneous
  Country: DE (occurrence: DE)
  Receive Date: 20211117
  Receipt Date: 20211123
  Transmission Date: 20220303
  Serious: Yes (Hospitalization, Other)
  Sender: FDA-Public Use
  Company Number: DE-ADRED-07114-01

PATIENT
  Age: 84 Year
  Sex: Male
  Weight: 119 kg

DRUGS (10)
  1. AMIODARONE [Suspect]
     Active Substance: AMIODARONE
     Indication: Product used for unknown indication
     Dosage: 200 MILLIGRAM, QD (200 MG, 1-0-0-0, TABLETTEN)
     Route: 048
  2. SACUBITRIL\VALSARTAN [Suspect]
     Active Substance: SACUBITRIL\VALSARTAN
     Indication: Product used for unknown indication
     Dosage: 1 DOSAGE FORM,49|51 MG, 1-0-1-0, TABLETTEN
     Route: 048
  3. TORSEMIDE [Suspect]
     Active Substance: TORSEMIDE
     Indication: Product used for unknown indication
     Dosage: 500 MILLIGRAM, QD (200 MG, 1.5-1-0-0, TABLETTEN)
     Route: 048
  4. APIXABAN [Concomitant]
     Active Substance: APIXABAN
     Dosage: 2.5 MILLIGRAM,2.5 MG, 1-0-1-0, TABLETTEN
     Route: 048
  5. METAMIZOL                          /06276701/ [Concomitant]
     Dosage: 750 MILLIGRAM, 750 MG, BEDARF, TROPFEN
     Route: 048
  6. SIMVASTATIN [Concomitant]
     Active Substance: SIMVASTATIN
     Dosage: 20 MILLIGRAM, QD,40 MG, 0-0-0.5-0, TABLETTEN
     Route: 048
  7. TAMSULOSIN [Concomitant]
     Active Substance: TAMSULOSIN
     Dosage: 0.4 MILLIGRAM, QD (0.4 MG, 0-0-1-0, RETARD-KAPSELN)
     Route: 048
  8. PANTOPRAZOLE [Concomitant]
     Active Substance: PANTOPRAZOLE
     Dosage: 40 MILLIGRAM, QD (40 MG, 1-0-0-0, RETARD-TABLETTEN)
     Route: 048
  9. LEVOTHYROXINE [Concomitant]
     Active Substance: LEVOTHYROXINE
     Dosage: 150 MICROGRAM, QD (150 ?G, 1-0-0-0, TABLETTEN)
     Route: 048
  10. POLYETHYLENE GLYCOLS [Concomitant]
     Active Substance: POLYETHYLENE GLYCOLS
     Dosage: 1 DOSAGE FORM, QD (13 G, 1-0-0-0, PULVER)
     Route: 048

REACTIONS (3)
  - Acute kidney injury [Unknown]
  - Oedema peripheral [Unknown]
  - Pain [Unknown]
